FAERS Safety Report 14561964 (Version 1)
Quarter: 2018Q1

REPORT INFORMATION
  Report Type: Spontaneous
  Country: US (occurrence: US)
  Receive Date: 20180222
  Receipt Date: 20180222
  Transmission Date: 20180509
  Serious: Yes (Hospitalization)
  Sender: FDA-Public Use
  Company Number: US-UNITED THERAPEUTICS-UNT-2018-002211

PATIENT
  Sex: Female

DRUGS (2)
  1. REMODULIN [Suspect]
     Active Substance: TREPROSTINIL
     Indication: PULMONARY ARTERIAL HYPERTENSION
     Dosage: 0.017 ?G/KG, CONTINUING
     Route: 058
     Dates: start: 20180122, end: 20180125
  2. REMODULIN [Suspect]
     Active Substance: TREPROSTINIL
     Dosage: 0.0158 ?G/KG, CONTINUING
     Route: 058
     Dates: start: 20180125

REACTIONS (2)
  - Feeling abnormal [Unknown]
  - Vertigo [Unknown]

NARRATIVE: CASE EVENT DATE: 20180122
